FAERS Safety Report 15434363 (Version 2)
Quarter: 2018Q4

REPORT INFORMATION
  Report Type: Spontaneous
  Country: MX (occurrence: MX)
  Receive Date: 20180927
  Receipt Date: 20181026
  Transmission Date: 20190204
  Serious: Yes (Life-Threatening)
  Sender: FDA-Public Use
  Company Number: MX-BAYER-2017-041408

PATIENT

DRUGS (1)
  1. CIPROXINA (CIPROFLOXACIN) [Suspect]
     Active Substance: CIPROFLOXACIN
     Dosage: UNK

REACTIONS (2)
  - Cardiac disorder [Unknown]
  - Tachycardia [Unknown]
